FAERS Safety Report 10044239 (Version 1)
Quarter: 2014Q1

REPORT INFORMATION
  Report Type: Spontaneous
  Country: US (occurrence: None)
  Receive Date: 20140327
  Receipt Date: 20140327
  Transmission Date: 20141002
  Serious: Yes (Hospitalization)
  Sender: FDA-Public Use
  Company Number: None

PATIENT
  Age: 38 Year
  Sex: Male
  Weight: 61.5 kg

DRUGS (1)
  1. SUMATRIPTAN [Suspect]
     Indication: MIGRAINE
     Route: 058
     Dates: start: 20140321, end: 20140321

REACTIONS (5)
  - Serotonin syndrome [None]
  - Hypertonia [None]
  - Hyperreflexia [None]
  - Myoclonus [None]
  - Anxiety [None]
